FAERS Safety Report 16541547 (Version 1)
Quarter: 2019Q3

REPORT INFORMATION
  Report Type: Report from Study
  Country: US (occurrence: US)
  Receive Date: 20190708
  Receipt Date: 20190708
  Transmission Date: 20191004
  Serious: Yes (Death, Hospitalization)
  Sender: FDA-Public Use
  Company Number: US-BRISTOL-MYERS SQUIBB COMPANY-BMS-2019-021264

PATIENT
  Age: 67 Year
  Sex: Male

DRUGS (8)
  1. ALLOPURINOL. [Concomitant]
     Active Substance: ALLOPURINOL
     Indication: GOUT
     Dosage: UNK, DAILY
     Route: 048
     Dates: start: 2014
  2. METOPROLOL. [Concomitant]
     Active Substance: METOPROLOL
     Indication: ATRIAL FIBRILLATION
     Dosage: UNK, DAILY
     Route: 048
     Dates: start: 20180911
  3. SEVELAMER [Concomitant]
     Active Substance: SEVELAMER
     Indication: HYPERPHOSPHATAEMIA
     Dosage: UNK UNK, TID
     Route: 048
     Dates: start: 20180814
  4. PANTOPRAZOL                        /01263201/ [Concomitant]
     Active Substance: PANTOPRAZOLE
     Indication: GASTROINTESTINAL HAEMORRHAGE
     Dosage: UNK
     Route: 048
     Dates: start: 20181221
  5. MIDODRINE [Concomitant]
     Active Substance: MIDODRINE
     Indication: HYPOTENSION
     Dosage: UNK UNK, TID
     Route: 048
     Dates: start: 20181121
  6. CEFEPIME [Concomitant]
     Active Substance: CEFEPIME HYDROCHLORIDE
     Indication: PNEUMONIA
     Dosage: UNK UNK, 3 TIMES/WK
     Route: 042
     Dates: start: 20181226, end: 20190102
  7. VANCOMYCIN [Concomitant]
     Active Substance: VANCOMYCIN
     Indication: PNEUMONIA
     Dosage: UNK, Q3WK
     Route: 042
     Dates: start: 20181226, end: 20190102
  8. APIXABAN [Suspect]
     Active Substance: APIXABAN
     Indication: CEREBROVASCULAR ACCIDENT PROPHYLAXIS
     Dosage: UNK
     Route: 065
     Dates: end: 20181209

REACTIONS (3)
  - Diarrhoea [Recovered/Resolved]
  - Renal disorder [Fatal]
  - Oedema peripheral [Recovered/Resolved]

NARRATIVE: CASE EVENT DATE: 20181226
